FAERS Safety Report 8385444-8 (Version None)
Quarter: 2012Q2

REPORT INFORMATION
  Report Type: 
  Country: None (occurrence: None)
  Receive Date: 20120525
  Receipt Date: 20120515
  Transmission Date: 20120825
  Serious: No
  Sender: FDA-Public Use
  Company Number: US-BIOGENIDEC-2012BI017781

PATIENT
  Age: 63 Year
  Sex: Female

DRUGS (3)
  1. TYSABRI [Suspect]
     Indication: MULTIPLE SCLEROSIS
     Route: 042
     Dates: start: 20080701, end: 20080730
  2. TYSABRI [Suspect]
     Route: 042
     Dates: start: 20081120, end: 20110819
  3. TYSABRI [Suspect]
     Route: 042
     Dates: start: 20120430

REACTIONS (2)
  - MULTIPLE SCLEROSIS RELAPSE [None]
  - LACRIMATION INCREASED [None]
